FAERS Safety Report 5593258-7 (Version None)
Quarter: 2008Q1

REPORT INFORMATION
  Report Type: 
  Country: None (occurrence: None)
  Receive Date: 20080115
  Receipt Date: 20080115
  Transmission Date: 20080703
  Serious: Yes (Life-Threatening, Other)
  Sender: FDA-Public Use
  Company Number: None

PATIENT
  Age: 38 Year
  Sex: Female
  Weight: 72.5755 kg

DRUGS (1)
  1. CHANTIX [Suspect]
     Indication: SMOKING CESSATION THERAPY
     Dosage: 60 TABS TWICE A DAY PO
     Route: 048

REACTIONS (5)
  - AMNESIA [None]
  - ANXIETY [None]
  - NERVOUSNESS [None]
  - PANIC REACTION [None]
  - SUICIDAL IDEATION [None]
